FAERS Safety Report 5583385-2 (Version None)
Quarter: 2008Q1

REPORT INFORMATION
  Report Type: 
  Country: None (occurrence: None)
  Receive Date: 20080107
  Receipt Date: 20071227
  Transmission Date: 20080703
  Serious: Yes (Other)
  Sender: FDA-Public Use
  Company Number: JP-PFIZER INC-2007108592

PATIENT
  Age: 50 Year
  Sex: Male

DRUGS (7)
  1. DIFLUCAN [Suspect]
     Indication: SYSTEMIC CANDIDA
     Route: 048
  2. FLORID-F [Suspect]
  3. WARFARIN SODIUM [Suspect]
  4. MUCOSTA [Concomitant]
     Route: 048
  5. GASTER OD [Concomitant]
     Route: 048
  6. PREDONINE [Concomitant]
     Route: 048
  7. ALFAROL [Concomitant]
     Route: 048

REACTIONS (2)
  - PROTHROMBIN TIME PROLONGED [None]
  - PURPURA [None]
